FAERS Safety Report 6702990-0 (Version None)
Quarter: 2010Q2

REPORT INFORMATION
  Report Type: 
  Country: None (occurrence: None)
  Receive Date: 20100429
  Receipt Date: 20100423
  Transmission Date: 20101027
  Serious: Yes (Other)
  Sender: FDA-Public Use
  Company Number: ZA-ALLERGAN-1005374US

PATIENT
  Sex: Female

DRUGS (2)
  1. BOTOX [Suspect]
     Indication: SKIN WRINKLING
     Dosage: UNK
  2. CIPROFLOXACIN [Suspect]
     Indication: CYSTITIS

REACTIONS (5)
  - ARTHRALGIA [None]
  - CYSTITIS [None]
  - HEADACHE [None]
  - MYALGIA [None]
  - RASH [None]
